FAERS Safety Report 7110058-7 (Version None)
Quarter: 2010Q4

REPORT INFORMATION
  Report Type: 
  Country: None (occurrence: None)
  Receive Date: 20101118
  Receipt Date: 20101109
  Transmission Date: 20110411
  Serious: Yes (Hospitalization)
  Sender: FDA-Public Use
  Company Number: AU-ASTRAZENECA-2010SE53601

PATIENT
  Age: 706 Month
  Sex: Female

DRUGS (1)
  1. ARIMIDEX [Suspect]
     Route: 048
     Dates: start: 20101001

REACTIONS (4)
  - BLISTER [None]
  - PRURITUS [None]
  - SKIN LESION [None]
  - SKIN ULCER [None]
